FAERS Safety Report 25717819 (Version 1)
Quarter: 2025Q3

REPORT INFORMATION
  Report Type: Spontaneous
  Country: EU (occurrence: EU)
  Receive Date: 20250822
  Receipt Date: 20250822
  Transmission Date: 20251021
  Serious: Yes (Other)
  Sender: MERCK SHARP & DOHME LLC
  Company Number: EU-009507513-2269247

PATIENT
  Age: 34 Year
  Sex: Female
  Weight: 65 kg

DRUGS (10)
  1. SOTATERCEPT [Suspect]
     Active Substance: SOTATERCEPT
     Indication: Pulmonary arterial hypertension
     Dosage: 0.7 MG/KG / 3 WEEKS
     Route: 058
     Dates: start: 20240820, end: 20241224
  2. SOTATERCEPT [Suspect]
     Active Substance: SOTATERCEPT
     Dosage: 0.3 MG/KG ONCE
     Route: 058
     Dates: start: 20250204, end: 20250204
  3. SOTATERCEPT [Suspect]
     Active Substance: SOTATERCEPT
  4. SOTATERCEPT [Suspect]
     Active Substance: SOTATERCEPT
  5. WARFARIN SODIUM [Concomitant]
     Active Substance: WARFARIN SODIUM
     Indication: Thrombosis prophylaxis
     Route: 048
  6. DIFFU-K, capsule [Concomitant]
     Indication: Hypokalaemia
     Route: 048
  7. BOSENTAN [Concomitant]
     Active Substance: BOSENTAN
     Indication: Pulmonary arterial hypertension
     Route: 048
  8. MIRENA 52 mg (20 micrograms/24 hours), intrauterine device [Concomitant]
     Indication: Intrauterine contraception
     Route: 015
     Dates: start: 202011
  9. VELETRI 1.5 mg, powder and solvent for solution for infusion [Concomitant]
     Indication: Pulmonary arterial hypertension
     Route: 042
  10. TADALAFIL QUIVER 20 mg, film-coated tablet [Concomitant]
     Indication: Pulmonary arterial hypertension
     Route: 048

REACTIONS (9)
  - Thrombocytopenia [Recovered/Resolved]
  - Folate deficiency [Unknown]
  - Iron deficiency [Unknown]
  - Vitamin B12 deficiency [Unknown]
  - Asthenia [Unknown]
  - Muscular weakness [Unknown]
  - Palpitations [Unknown]
  - Myelodysplastic syndrome [Unknown]
  - Myelocytosis [Unknown]

NARRATIVE: CASE EVENT DATE: 20240906
